FAERS Safety Report 6982844-5 (Version None)
Quarter: 2010Q3

REPORT INFORMATION
  Report Type: 
  Country: None (occurrence: None)
  Receive Date: 20100914
  Receipt Date: 20100330
  Transmission Date: 20110219
  Serious: No
  Sender: FDA-Public Use
  Company Number: US-PFIZER INC-2010041351

PATIENT
  Sex: Female
  Weight: 70.295 kg

DRUGS (3)
  1. LYRICA [Suspect]
     Indication: FIBROMYALGIA
     Dosage: 75 MG, 2X/DAY
     Route: 048
     Dates: start: 20100329
  2. HYZAAR [Concomitant]
     Indication: HYPERTENSION
  3. AMPHETAMINE SULFATE [Concomitant]
     Dosage: 20 MG, UNK

REACTIONS (2)
  - EUPHORIC MOOD [None]
  - FEELING DRUNK [None]
